FAERS Safety Report 24221611 (Version 1)
Quarter: 2024Q3

REPORT INFORMATION
  Report Type: Spontaneous
  Country: NZ (occurrence: NZ)
  Receive Date: 20240819
  Receipt Date: 20240819
  Transmission Date: 20241016
  Serious: Yes (Death, Other)
  Sender: AMGEN
  Company Number: NZ-AMGEN-NZLSP2024161561

PATIENT

DRUGS (12)
  1. CARFILZOMIB [Suspect]
     Active Substance: CARFILZOMIB
     Indication: Plasma cell myeloma refractory
     Dosage: 20 MILLIGRAM/SQ. METER, DAYS 1, 2, PORTACATH
     Route: 042
     Dates: start: 20160518
  2. CARFILZOMIB [Suspect]
     Active Substance: CARFILZOMIB
     Dosage: 60 MILLIGRAM, DAYS 8, 9, 15 AND 16 OF A 28-DAY CYCLE, PORTACATH
     Route: 042
  3. CARFILZOMIB [Suspect]
     Active Substance: CARFILZOMIB
     Dosage: 60 MILLIGRAM, REDUCING CARFILZOMIB TO ONLY DAYS 1 AND 2 OF A 28-DAY CYCLE
     Route: 042
     Dates: end: 20180521
  4. DEXAMETHASONE [Suspect]
     Active Substance: DEXAMETHASONE
     Indication: Plasma cell myeloma refractory
     Dosage: 20 MILLIGRAM, ON DAYS OF CARFILZOMIB (1, 2, 8, 9, 15 AND 16)
     Route: 048
  5. CYCLOPHOSPHAMIDE [Suspect]
     Active Substance: CYCLOPHOSPHAMIDE
     Indication: Plasma cell myeloma refractory
     Dosage: 300 MILLIGRAM/SQ. METER, DAYS 1, 8, AND 15
     Route: 048
  6. THALIDOMIDE [Suspect]
     Active Substance: THALIDOMIDE
     Indication: Plasma cell myeloma refractory
     Dosage: 100 MILLIGRAM, QD
     Route: 065
  7. LENALIDOMIDE [Suspect]
     Active Substance: LENALIDOMIDE
     Indication: Plasma cell myeloma refractory
     Dosage: 25 MILLIGRAM, DAYS 1-21
     Route: 065
  8. VENETOCLAX [Suspect]
     Active Substance: VENETOCLAX
     Indication: Plasma cell myeloma refractory
     Dosage: 800 MILLIGRAM, QD
     Route: 065
  9. VALACYCLOVIR HYDROCHLORIDE [Concomitant]
     Active Substance: VALACYCLOVIR HYDROCHLORIDE
     Dosage: UNK
  10. COTRIMOXAZOLE [Concomitant]
     Active Substance: SULFAMETHOXAZOLE\TRIMETHOPRIM
     Dosage: UNK
  11. ALLOPURINOL [Concomitant]
     Active Substance: ALLOPURINOL
     Dosage: UNK
  12. ASPIRIN [Concomitant]
     Active Substance: ASPIRIN
     Indication: Prophylaxis
     Dosage: 100 MILLIGRAM, QD

REACTIONS (6)
  - Death [Fatal]
  - Plasma cell myeloma refractory [Unknown]
  - Acute myocardial infarction [Unknown]
  - Dyspnoea [Unknown]
  - Therapy partial responder [Unknown]
  - Off label use [Unknown]

NARRATIVE: CASE EVENT DATE: 20160101
